FAERS Safety Report 8029819-5 (Version None)
Quarter: 2012Q1

REPORT INFORMATION
  Report Type: 
  Country: None (occurrence: None)
  Receive Date: 20120109
  Receipt Date: 20111231
  Transmission Date: 20120608
  Serious: Yes (Life-Threatening, Hospitalization, Other)
  Sender: FDA-Public Use
  Company Number: US-PFIZER INC-2011285577

PATIENT
  Age: 33 Year
  Sex: Female

DRUGS (1)
  1. EPINEPHRINE [Suspect]
     Dosage: UNK

REACTIONS (5)
  - HYPERSENSITIVITY [None]
  - CONTUSION [None]
  - APPARENT DEATH [None]
  - CHOKING [None]
  - MEDICATION ERROR [None]
